FAERS Safety Report 6808168-4 (Version None)
Quarter: 2010Q2

REPORT INFORMATION
  Report Type: 
  Country: None (occurrence: None)
  Receive Date: 20100629
  Receipt Date: 20090608
  Transmission Date: 20101027
  Serious: No
  Sender: FDA-Public Use
  Company Number: US-PFIZER INC-2009175904

PATIENT
  Sex: Female
  Weight: 58.967 kg

DRUGS (1)
  1. XANAX [Suspect]
     Indication: PANIC DISORDER
     Dosage: 1 MG, 3X/DAY
     Route: 048
     Dates: start: 19840101

REACTIONS (5)
  - BLOOD POTASSIUM DECREASED [None]
  - DIZZINESS [None]
  - FEELING ABNORMAL [None]
  - SOMNOLENCE [None]
  - THERAPEUTIC RESPONSE UNEXPECTED [None]
